FAERS Safety Report 17147440 (Version 2)
Quarter: 2019Q4

REPORT INFORMATION
  Report Type: Report from Study
  Country: US (occurrence: US)
  Receive Date: 20191212
  Receipt Date: 20191224
  Transmission Date: 20200122
  Serious: No
  Sender: FDA-Public Use
  Company Number: US-AMGEN-USASP2019205893

PATIENT
  Age: 71 Year
  Sex: Female
  Weight: 75.28 kg

DRUGS (4)
  1. NEXIUM [Concomitant]
     Active Substance: ESOMEPRAZOLE MAGNESIUM
     Indication: GASTROOESOPHAGEAL REFLUX DISEASE
  2. VITAMIN D3 [Concomitant]
     Active Substance: CHOLECALCIFEROL
  3. PROLIA [Suspect]
     Active Substance: DENOSUMAB
     Indication: PROPHYLAXIS
     Dosage: 60 MILLIGRAM, Q6MO
     Route: 058
     Dates: start: 2018
  4. CALCIUM [Concomitant]
     Active Substance: CALCIUM

REACTIONS (6)
  - Dental caries [Unknown]
  - Tooth erosion [Unknown]
  - Tooth abscess [Unknown]
  - Toothache [Unknown]
  - Swelling face [Unknown]
  - Retching [Unknown]

NARRATIVE: CASE EVENT DATE: 201909
